FAERS Safety Report 4822507-5 (Version None)
Quarter: 2005Q4

REPORT INFORMATION
  Report Type: 
  Country: None (occurrence: None)
  Receive Date: 20051108
  Receipt Date: 20051027
  Transmission Date: 20060501
  Serious: Yes (Hospitalization)
  Sender: FDA-Public Use
  Company Number: US-JNJFOC-20051005856

PATIENT
  Sex: Female

DRUGS (12)
  1. INFLIXIMAB [Suspect]
     Indication: RHEUMATOID ARTHRITIS
     Route: 042
  2. METHOTREXATE [Concomitant]
  3. FOLIC ACID [Concomitant]
  4. ENALAPRIL MALEATE [Concomitant]
  5. ASPIRIN [Concomitant]
  6. FOSAMAX [Concomitant]
  7. OSCAL [Concomitant]
  8. SYNTHROID [Concomitant]
  9. TYLENOL (CAPLET) [Concomitant]
  10. VITAMIN B-12 [Concomitant]
  11. VITAMIN E [Concomitant]
  12. PLETAL [Concomitant]

REACTIONS (1)
  - BRAIN NEOPLASM [None]
